FAERS Safety Report 17866456 (Version 2)
Quarter: 2020Q2

REPORT INFORMATION
  Report Type: Spontaneous
  Country: US (occurrence: US)
  Receive Date: 20200605
  Receipt Date: 20200608
  Transmission Date: 20200714
  Serious: Yes (Other)
  Sender: FDA-Public Use
  Company Number: US-CELGENEUS-USA-20200600920

PATIENT
  Sex: Female
  Weight: 51 kg

DRUGS (1)
  1. REVLIMID [Suspect]
     Active Substance: LENALIDOMIDE
     Indication: B-CELL LYMPHOMA
     Dosage: 10 MILLIGRAM
     Route: 048
     Dates: start: 20200519

REACTIONS (7)
  - Platelet count decreased [Recovered/Resolved]
  - Red blood cell count decreased [Unknown]
  - Fluid retention [Unknown]
  - Muscle spasms [Unknown]
  - Renal impairment [Unknown]
  - Cough [Unknown]
  - Night sweats [Unknown]

NARRATIVE: CASE EVENT DATE: 2020
